FAERS Safety Report 18451691 (Version 1)
Quarter: 2020Q4

REPORT INFORMATION
  Report Type: Spontaneous
  Country: US (occurrence: US)
  Receive Date: 20201030
  Receipt Date: 20201030
  Transmission Date: 20210114
  Serious: Yes (Hospitalization)
  Sender: FDA-Public Use
  Company Number: None

PATIENT
  Age: 69 Year
  Sex: Female

DRUGS (13)
  1. VITAMIN D3 [Concomitant]
     Active Substance: CHOLECALCIFEROL
  2. MAGNESIUM [Concomitant]
     Active Substance: MAGNESIUM
  3. DANTROLENE. [Concomitant]
     Active Substance: DANTROLENE SODIUM
  4. FLUTICASONE. [Concomitant]
     Active Substance: FLUTICASONE
  5. ASPIRIN. [Concomitant]
     Active Substance: ASPIRIN
  6. ATORVASTAIIN [Concomitant]
  7. PENTOXIFYLLI [Concomitant]
  8. PLEGRIDY [Suspect]
     Active Substance: PEGINTERFERON BETA-1A
     Indication: ASTHMA
     Route: 058
     Dates: start: 20180104
  9. KLOR~CON SPR [Concomitant]
  10. CALCIUM 600 [Concomitant]
     Active Substance: CALCIUM
  11. TIZANIDINE. [Concomitant]
     Active Substance: TIZANIDINE
  12. AMLODIPINE [Concomitant]
     Active Substance: AMLODIPINE BESYLATE
  13. FISH OIL [Concomitant]
     Active Substance: FISH OIL

REACTIONS (1)
  - Surgery [None]

NARRATIVE: CASE EVENT DATE: 20201015
